FAERS Safety Report 4137699 (Version 3)
Quarter: 2019Q2

REPORT INFORMATION
  Report Type: Spontaneous
  Country: CA (occurrence: CA)
  Receive Date: 20040511
  Receipt Date: 20190408
  Transmission Date: 20190711
  Serious: Yes (Death)
  Sender: FDA-Public Use
  Company Number: CA-ROCHE-366413

PATIENT
  Age: 16 Year
  Sex: Male

DRUGS (3)
  1. ACCUTANE [Suspect]
     Active Substance: ISOTRETINOIN
     Indication: ACNE
     Route: 065
  2. PAXIL (CANADA) [Concomitant]
     Indication: ANXIETY
     Route: 048
  3. ZYPREXA [Concomitant]
     Active Substance: OLANZAPINE
     Route: 065

REACTIONS (3)
  - Nightmare [Unknown]
  - Completed suicide [Fatal]
  - Anxiety [Unknown]

NARRATIVE: CASE EVENT DATE: 20031229
